FAERS Safety Report 13830118 (Version 3)
Quarter: 2017Q3

REPORT INFORMATION
  Report Type: Report from Study
  Country: US (occurrence: US)
  Receive Date: 20170803
  Receipt Date: 20170818
  Transmission Date: 20171127
  Serious: Yes (Hospitalization, Other)
  Sender: FDA-Public Use
  Company Number: US-GILEAD-2017-0284395

PATIENT
  Age: 52 Year
  Sex: Female

DRUGS (15)
  1. AMBRISENTAN [Suspect]
     Active Substance: AMBRISENTAN
     Indication: PULMONARY ARTERIAL HYPERTENSION
     Dosage: 10 MG, QD
     Route: 048
     Dates: start: 20110505
  2. AMBRISENTAN [Suspect]
     Active Substance: AMBRISENTAN
     Indication: PULMONARY ARTERIAL HYPERTENSION
  3. ADCIRCA [Concomitant]
     Active Substance: TADALAFIL
  4. FLUOXETINE [Concomitant]
     Active Substance: FLUOXETINE HYDROCHLORIDE
  5. SPIRONOLACTONE. [Concomitant]
     Active Substance: SPIRONOLACTONE
  6. MAGNESIUM [Concomitant]
     Active Substance: MAGNESIUM
  7. OXYCODONE [Concomitant]
     Active Substance: OXYCODONE
  8. XANAX [Concomitant]
     Active Substance: ALPRAZOLAM
  9. WARFARIN [Concomitant]
     Active Substance: WARFARIN
  10. VITAMIN D3 [Concomitant]
     Active Substance: CHOLECALCIFEROL
  11. VELETRI [Concomitant]
     Active Substance: EPOPROSTENOL
  12. LACTULOSE. [Concomitant]
     Active Substance: LACTULOSE
  13. POTASSIUM [Concomitant]
     Active Substance: POTASSIUM
  14. TORSEMIDE. [Concomitant]
     Active Substance: TORSEMIDE
  15. ZOFRAN [Concomitant]
     Active Substance: ONDANSETRON HYDROCHLORIDE

REACTIONS (4)
  - Fluid retention [Unknown]
  - Ascites [Unknown]
  - Syncope [Unknown]
  - Cardiac failure [Unknown]
